FAERS Safety Report 7621419-1 (Version None)
Quarter: 2011Q3

REPORT INFORMATION
  Report Type: 
  Country: None (occurrence: None)
  Receive Date: 20110719
  Receipt Date: 20110714
  Transmission Date: 20111222
  Serious: Yes (Hospitalization)
  Sender: FDA-Public Use
  Company Number: US-VERTEX PHARMACEUTICALS INC.-AE-2011-000490

PATIENT
  Sex: Female

DRUGS (8)
  1. LANTUS [Concomitant]
     Indication: DIABETES MELLITUS
     Route: 058
  2. NEURONTIN [Concomitant]
     Indication: NEUROPATHY PERIPHERAL
     Route: 048
  3. POTASSIUM CHLORIDE [Concomitant]
     Route: 048
  4. INTERFERON [Concomitant]
     Indication: HEPATITIS C
     Route: 058
     Dates: start: 20110620
  5. RIBAVIRIN [Concomitant]
     Indication: HEPATITIS C
     Route: 048
     Dates: start: 20110620
  6. LASIX [Concomitant]
     Indication: FLUID IMBALANCE
     Route: 048
     Dates: start: 20010101
  7. HYDROCODONE [Concomitant]
     Indication: BACK PAIN
     Route: 048
  8. INCIVEK [Suspect]
     Indication: HEPATITIS C
     Route: 048
     Dates: start: 20110620

REACTIONS (7)
  - CONFUSIONAL STATE [None]
  - AMMONIA INCREASED [None]
  - NAUSEA [None]
  - BLOOD URIC ACID INCREASED [None]
  - PYREXIA [None]
  - KIDNEY INFECTION [None]
  - RASH PRURITIC [None]
